FAERS Safety Report 6512503-4 (Version None)
Quarter: 2009Q4

REPORT INFORMATION
  Report Type: 
  Country: None (occurrence: None)
  Receive Date: 20091222
  Receipt Date: 20091217
  Transmission Date: 20100525
  Serious: Yes (Death)
  Sender: FDA-Public Use
  Company Number: TW-BAXTER-2009BH018924

PATIENT
  Age: 78 None
  Sex: Female

DRUGS (6)
  1. DIANEAL [Suspect]
     Indication: PERITONEAL DIALYSIS
     Route: 033
     Dates: start: 20091101
  2. DIANEAL [Suspect]
     Route: 033
     Dates: start: 20091101
  3. DIANEAL [Suspect]
     Route: 033
     Dates: start: 20091101
  4. DIANEAL [Suspect]
     Route: 033
     Dates: start: 20091101
  5. EXTRANEAL [Suspect]
     Indication: PERITONEAL DIALYSIS
     Route: 033
     Dates: start: 20091101
  6. EXTRANEAL [Suspect]
     Route: 033
     Dates: start: 20091101

REACTIONS (1)
  - PANCREATITIS [None]
